FAERS Safety Report 4345832-3 (Version None)
Quarter: 2004Q2

REPORT INFORMATION
  Report Type: 
  Country: None (occurrence: None)
  Receive Date: 20040423
  Receipt Date: 20040423
  Transmission Date: 20050107
  Serious: Yes (Hospitalization, Other)
  Sender: FDA-Public Use
  Company Number: None

PATIENT
  Age: 70 Year
  Sex: Male
  Weight: 75 kg

DRUGS (10)
  1. IRINOTECAN 65 MG/M2 [Suspect]
     Indication: GASTRIC CANCER
     Dosage: 126 MG X 1 IV
     Route: 042
     Dates: start: 20040219
  2. IRINOTECAN 65 MG/M2 [Suspect]
     Indication: GASTRIC CANCER
     Dosage: 126 MG X 1 IV
     Route: 042
     Dates: start: 20040226
  3. IRINOTECAN 65 MG/M2 [Suspect]
     Indication: GASTRIC CANCER
     Dosage: 126 MG X 1 IV
     Route: 042
     Dates: start: 20040317
  4. IRINOTECAN 65 MG/M2 [Suspect]
     Indication: GASTRIC CANCER
     Dosage: 126 MG X 1 IV
     Route: 042
     Dates: start: 20040318
  5. IRINOTECAN 65 MG/M2 [Suspect]
     Indication: GASTRIC CANCER
     Dosage: 126 MG X 1 IV
     Route: 042
     Dates: start: 20040401
  6. CISPLATIN [Suspect]
     Indication: GASTRIC CANCER
     Dosage: 58 MG X 1 IV
     Route: 042
     Dates: start: 20040219
  7. CISPLATIN [Suspect]
     Indication: GASTRIC CANCER
     Dosage: 58 MG X 1 IV
     Route: 042
     Dates: start: 20040226
  8. CISPLATIN [Suspect]
     Indication: GASTRIC CANCER
     Dosage: 58 MG X 1 IV
     Route: 042
     Dates: start: 20040311
  9. CISPLATIN [Suspect]
     Indication: GASTRIC CANCER
     Dosage: 58 MG X 1 IV
     Route: 042
     Dates: start: 20040318
  10. CISPLATIN [Suspect]
     Indication: GASTRIC CANCER
     Dosage: 58 MG X 1 IV
     Route: 042
     Dates: start: 20040401

REACTIONS (2)
  - DEEP VEIN THROMBOSIS [None]
  - GRAND MAL CONVULSION [None]
